FAERS Safety Report 22980134 (Version 2)
Quarter: 2023Q4

REPORT INFORMATION
  Report Type: Spontaneous
  Country: DE (occurrence: DE)
  Receive Date: 20230925
  Receipt Date: 20231127
  Transmission Date: 20240110
  Serious: Yes (Hospitalization)
  Sender: FDA-Public Use
  Company Number: DE-SAMSUNG BIOEPIS-SB-2023-24630

PATIENT
  Age: 34 Year
  Sex: Male

DRUGS (6)
  1. OXALIPLATIN [Suspect]
     Active Substance: OXALIPLATIN
     Indication: Oesophageal adenocarcinoma
     Dosage: ROA-20045000, BDF-0096, UNKNOWN(OTHER/UNSPECIFIED)?ROA-20045000
     Route: 042
     Dates: start: 20230526, end: 20230707
  2. LEUCOVORIN [Suspect]
     Active Substance: LEUCOVORIN\LEUCOVORIN CALCIUM
     Indication: Oesophageal adenocarcinoma
     Dosage: ROA-20045000, BDF-0096, UNKNOWN( OTHER, UNSPECIFIED)?ROA-20045000
     Route: 042
     Dates: start: 20230526, end: 20230707
  3. DOCETAXEL [Suspect]
     Active Substance: DOCETAXEL\DOCETAXEL ANHYDROUS
     Indication: Oesophageal adenocarcinoma
     Dosage: ROA-20045000, BDF-0096, UNKNOWN( OTHER/UNSPECIFIED)?ROA-20045000
     Route: 042
     Dates: start: 20230526, end: 20230707
  4. FLUOROURACIL [Suspect]
     Active Substance: FLUOROURACIL
     Indication: Oesophageal adenocarcinoma
     Dosage: ROA-20045000, BDF-0096,  UNKNOWN( OTHER, UNSPECIFIED)?ROA-20045000
     Route: 042
     Dates: start: 20230526, end: 20230707
  5. PEMBROLIZUMAB [Suspect]
     Active Substance: PEMBROLIZUMAB
     Indication: Oesophageal adenocarcinoma
     Dosage: ROA-20045000 ,BDF-0096, UNKNOWN( OTHER, UNSPECIFIED)?ROA-20045000
     Route: 042
     Dates: start: 20230526, end: 20230707
  6. ONTRUZANT [Suspect]
     Active Substance: TRASTUZUMAB-DTTB
     Indication: Oesophageal adenocarcinoma
     Dosage: ROA-20045000,  BDF-0096, UNKNOWN( OTHER, UNSPECIFIED)
     Route: 042
     Dates: start: 20230526, end: 20230707

REACTIONS (2)
  - Pulmonary embolism [Recovered/Resolved]
  - Product use in unapproved indication [Unknown]

NARRATIVE: CASE EVENT DATE: 20230825
